FAERS Safety Report 8806389 (Version 1)
Quarter: 2012Q4

REPORT INFORMATION
  Report Type: Spontaneous
  Country: US (occurrence: None)
  Receive Date: 20120918
  Receipt Date: 20120918
  Transmission Date: 20130627
  Serious: Yes (Hospitalization)
  Sender: FDA-Public Use
  Company Number: 2012US-004348

PATIENT
  Age: 63 Year
  Sex: Female
  Weight: 90.6 kg

DRUGS (8)
  1. OMONTYS (PEGINESATIDE) SOLUTION FOR INJECTION [Suspect]
     Dates: start: 20120723, end: 20120723
  2. PLAVIX (CLOPIDOGREL BISULFATE) [Concomitant]
  3. COLACE (DOCUSATE SODIUM) [Concomitant]
  4. LEVOTHYROXINE (LEVOTHYROXINE) [Concomitant]
  5. SIMVASTATIN (SIMVASTATIN) [Concomitant]
  6. ACETAMINOPHEN (PARACETAMOL) [Concomitant]
  7. PERCOCET (OXYCODONE HYDROCHLORIDE, OXYCODONE TEREPHTHALATE, PARACETAMOL) [Concomitant]
  8. ZOFRAN (ONDANSETRON) [Concomitant]

REACTIONS (3)
  - Non-cardiogenic pulmonary oedema [None]
  - Blood pressure systolic increased [None]
  - Dyspnoea [None]
